FAERS Safety Report 16330335 (Version 1)
Quarter: 2019Q2

REPORT INFORMATION
  Report Type: Spontaneous
  Country: FR (occurrence: FR)
  Receive Date: 20190520
  Receipt Date: 20190520
  Transmission Date: 20190711
  Serious: Yes (Other)
  Sender: FDA-Public Use
  Company Number: FR-ACCORD-128080

PATIENT
  Age: 59 Year
  Sex: Female
  Weight: 75 kg

DRUGS (2)
  1. IRINOTECAN ACCORD [Suspect]
     Active Substance: IRINOTECAN
     Indication: PANCREATIC CARCINOMA
     Dosage: 20 MG / ML, CONCENTRATE FOR SOLUTION FOR INFUSION
     Route: 042
     Dates: start: 20190321, end: 20190321
  2. OXALIPLATIN ACCORD [Suspect]
     Active Substance: OXALIPLATIN
     Indication: PANCREATIC CARCINOMA
     Dosage: 5 MG / ML, CONCENTRATE FOR SOLUTION FOR INFUSION
     Route: 042
     Dates: start: 20190321, end: 20190321

REACTIONS (3)
  - Laryngospasm [Recovered/Resolved]
  - Pain in jaw [Recovered/Resolved]
  - Anxiety [Recovered/Resolved]

NARRATIVE: CASE EVENT DATE: 20190321
